FAERS Safety Report 5140619-6 (Version None)
Quarter: 2006Q4

REPORT INFORMATION
  Report Type: 
  Country: None (occurrence: None)
  Receive Date: 20061019
  Receipt Date: 20061011
  Transmission Date: 20070319
  Serious: Yes (Other)
  Sender: FDA-Public Use
  Company Number: THYM-11110

PATIENT
  Age: 22 Month
  Sex: Female
  Weight: 14 kg

DRUGS (4)
  1. THYMOGLOBULIN [Suspect]
     Indication: BONE MARROW CONDITIONING REGIMEN
     Dates: start: 20061010, end: 20061010
  2. BUSULFAN [Concomitant]
  3. CYCLOPHOSPHAMIDE [Concomitant]
  4. ALDURAZYME [Concomitant]

REACTIONS (1)
  - ERYTHEMA MULTIFORME [None]
